FAERS Safety Report 7324356-5 (Version None)
Quarter: 2011Q1

REPORT INFORMATION
  Report Type: 
  Country: None (occurrence: None)
  Receive Date: 20110202
  Receipt Date: 20101223
  Transmission Date: 20110831
  Serious: No
  Sender: FDA-Public Use
  Company Number: 2010-16445

PATIENT
  Age: 48 Year
  Sex: Male

DRUGS (3)
  1. RAPAFLO [Suspect]
     Indication: NEPHROLITHIASIS
     Dosage: 8 MG, DAILY, ORAL
     Route: 048
     Dates: start: 20101221
  2. THYROID TAB [Concomitant]
  3. CARAFATE [Concomitant]

REACTIONS (1)
  - NASAL CONGESTION [None]
